FAERS Safety Report 23348987 (Version 2)
Quarter: 2024Q1

REPORT INFORMATION
  Report Type: Spontaneous
  Country: JP (occurrence: JP)
  Receive Date: 20231229
  Receipt Date: 20240326
  Transmission Date: 20240409
  Serious: Yes (Other)
  Sender: FDA-Public Use
  Company Number: JP-ONO-2023JP031777

PATIENT

DRUGS (1)
  1. OPDIVO [Suspect]
     Active Substance: NIVOLUMAB
     Indication: Metastatic renal cell carcinoma
     Route: 041

REACTIONS (6)
  - Cortisol increased [Unknown]
  - Blood corticotrophin increased [Unknown]
  - Gastritis [Unknown]
  - Malaise [Unknown]
  - Adrenal disorder [Unknown]
  - Cushing^s syndrome [Unknown]
